FAERS Safety Report 4452164-1 (Version None)
Quarter: 2004Q3

REPORT INFORMATION
  Report Type: 
  Country: None (occurrence: None)
  Receive Date: 20040916
  Receipt Date: 20040916
  Transmission Date: 20050211
  Serious: Yes (Death)
  Sender: FDA-Public Use
  Company Number: None

PATIENT
  Sex: Female
  Weight: 16.5 kg

DRUGS (12)
  1. INTRALIPID 20% [Suspect]
     Indication: MALABSORPTION
     Dosage: 200ML IN TPN DAILY
     Dates: start: 20040429, end: 20040826
  2. INTRALIPID 20% [Suspect]
  3. INTRALIPID 20% [Suspect]
  4. INTRALIPID 20% [Suspect]
  5. INTRALIPID 20% [Suspect]
  6. INTRALIPID 20% [Suspect]
  7. INTRALIPID 20% [Suspect]
  8. INTRALIPID 20% [Suspect]
  9. DEXTROSE [Concomitant]
  10. TROPHAMINE [Concomitant]
  11. M.V.I. [Concomitant]
  12. ZANTAC [Concomitant]

REACTIONS (2)
  - CONDITION AGGRAVATED [None]
  - LIVER FUNCTION TEST ABNORMAL [None]
